FAERS Safety Report 9045309 (Version 1)
Quarter: 2013Q1

REPORT INFORMATION
  Report Type: Spontaneous
  Country: IT (occurrence: IT)
  Receive Date: 20130131
  Receipt Date: 20130131
  Transmission Date: 20140127
  Serious: Yes (Hospitalization)
  Sender: FDA-Public Use
  Company Number: IT-TEVA-383219ISR

PATIENT
  Sex: Female

DRUGS (2)
  1. ENALAPRIL [Suspect]
  2. ACIDO ACETILSALICILICO [Concomitant]

REACTIONS (1)
  - Renal failure chronic [Not Recovered/Not Resolved]
